FAERS Safety Report 9237617 (Version 2)
Quarter: 2013Q2

REPORT INFORMATION
  Report Type: Spontaneous
  Country: CA (occurrence: CA)
  Receive Date: 20130418
  Receipt Date: 20130618
  Transmission Date: 20140414
  Serious: Yes (Other)
  Sender: FDA-Public Use
  Company Number: CA-AMGEN-CANSP2013014504

PATIENT
  Age: 21 Year
  Sex: Female
  Weight: 56.82 kg

DRUGS (1)
  1. XGEVA [Suspect]
     Indication: BONE GIANT CELL TUMOUR
     Dosage: 120 MG, Q4WK
     Route: 058
     Dates: start: 201205, end: 20121001

REACTIONS (1)
  - Abortion [Unknown]
